FAERS Safety Report 7750751-6 (Version None)
Quarter: 2011Q3

REPORT INFORMATION
  Report Type: 
  Country: None (occurrence: None)
  Receive Date: 20110914
  Receipt Date: 20110126
  Transmission Date: 20111222
  Serious: Yes (Other)
  Sender: FDA-Public Use
  Company Number: CA-BAYER-2011-008697

PATIENT

DRUGS (1)
  1. MIRENA [Suspect]
     Dosage: UNK

REACTIONS (2)
  - DEVICE DIFFICULT TO USE [None]
  - ASHERMAN'S SYNDROME [None]
